FAERS Safety Report 15837927 (Version 1)
Quarter: 2018Q4

REPORT INFORMATION
  Report Type: Spontaneous
  Country: US (occurrence: US)
  Receive Date: 20181222
  Receipt Date: 20181222
  Transmission Date: 20190205
  Serious: No
  Sender: FDA-Public Use
  Company Number: None

PATIENT
  Age: 48 Year
  Sex: Female

DRUGS (1)
  1. TALTZ [Suspect]
     Active Substance: IXEKIZUMAB
     Dosage: OTHER
     Route: 058
     Dates: start: 20180728

REACTIONS (4)
  - Injection site erythema [None]
  - Injection site rash [None]
  - Injection site swelling [None]
  - Injection site reaction [None]

NARRATIVE: CASE EVENT DATE: 20181121
